FAERS Safety Report 10189240 (Version 1)
Quarter: 2014Q2

REPORT INFORMATION
  Report Type: Spontaneous
  Country: IT (occurrence: None)
  Receive Date: 20140520
  Receipt Date: 20140520
  Transmission Date: 20141212
  Serious: Yes (Hospitalization, Other)
  Sender: FDA-Public Use
  Company Number: 2014-IT-06041

PATIENT
  Age: 11 Year
  Sex: Male

DRUGS (11)
  1. PRIALT [Suspect]
     Indication: ASTROCYTOMA
     Route: 037
     Dates: start: 201209
  2. BACLOFEN [Suspect]
     Route: 037
     Dates: start: 201209
  3. MENVEO (MENINGOCOCCAL VACCINE) [Concomitant]
  4. PREVNAR 13 (PNEUMOCOCCAL VACCINE) [Concomitant]
  5. TETRAVAC (DIPTHERIA VACCINE, PERTUSSSIS VACCINE, POLIO VACCINE, TENTANUS VACCINE) [Concomitant]
  6. OXCARBAZEPINE (OXCARBAZEPINE) [Concomitant]
  7. CLONAZEPAM (CLONAZEPAM) [Concomitant]
  8. DIAZEPAM (DIAZEPAM) [Concomitant]
  9. PAROXETINE HCL (PAROXETINE HYDROCHLORIDE) [Concomitant]
  10. LEVOTIROXINA (LEVOTHYROXINE SODIUM) [Concomitant]
  11. TRIPTORELIN (TRIPTORELIN) [Concomitant]

REACTIONS (5)
  - Toxic encephalopathy [None]
  - Hypertension [None]
  - Vomiting [None]
  - Headache [None]
  - Off label use [None]
